FAERS Safety Report 8360166-8 (Version None)
Quarter: 2012Q2

REPORT INFORMATION
  Report Type: 
  Country: None (occurrence: None)
  Receive Date: 20120515
  Receipt Date: 20110622
  Transmission Date: 20120825
  Serious: No
  Sender: FDA-Public Use
  Company Number: US-ALEXION-A201100930

PATIENT

DRUGS (6)
  1. PEPCID [Concomitant]
     Dosage: 20 MG, QD
  2. FOLIC ACID [Concomitant]
     Dosage: 1 MG, QD
  3. WELLBUTRIN [Concomitant]
     Dosage: 200 MG, QD
  4. SOLIRIS [Suspect]
     Indication: PAROXYSMAL NOCTURNAL HAEMOGLOBINURIA
     Dosage: 900 MG, UNK
     Route: 042
     Dates: start: 20090430
  5. ASPIRIN [Concomitant]
     Dosage: 81 MG, M-W-F
  6. SENNA-MINT WAF [Concomitant]
     Dosage: 34.4 MG, QD

REACTIONS (8)
  - CHROMATURIA [None]
  - FATIGUE [None]
  - ABDOMINAL PAIN [None]
  - HAEMATOCRIT DECREASED [None]
  - HOT FLUSH [None]
  - HAEMOGLOBIN DECREASED [None]
  - RED BLOOD CELL COUNT DECREASED [None]
  - PLATELET COUNT DECREASED [None]
